FAERS Safety Report 8559149-4 (Version None)
Quarter: 2012Q3

REPORT INFORMATION
  Report Type: 
  Country: None (occurrence: None)
  Receive Date: 20120802
  Receipt Date: 20120723
  Transmission Date: 20120928
  Serious: Yes (Life-Threatening, Hospitalization, Other)
  Sender: FDA-Public Use
  Company Number: US-009507513-1207USA010680

PATIENT

DRUGS (4)
  1. CLONIDINE [Suspect]
  2. PRINIVIL [Suspect]
     Route: 048
  3. IBUPROFEN [Suspect]
     Dosage: 400 MG, Q8H
  4. ZOCOR [Suspect]
     Route: 048

REACTIONS (4)
  - GRANULOMATOUS LIVER DISEASE [None]
  - HEPATIC FAILURE [None]
  - RENAL TUBULAR NECROSIS [None]
  - LIVER DISORDER [None]
